FAERS Safety Report 8131785-9 (Version None)
Quarter: 2012Q1

REPORT INFORMATION
  Report Type: 
  Country: None (occurrence: None)
  Receive Date: 20120208
  Receipt Date: 20120126
  Transmission Date: 20120608
  Serious: Yes (Hospitalization)
  Sender: FDA-Public Use
  Company Number: KAD201201-000102

PATIENT
  Age: 53 Year
  Sex: Female

DRUGS (2)
  1. RIBAVIRIN [Suspect]
     Dosage: 600 MG
  2. PEGASYS [Suspect]
     Dosage: 180 MCG, INJECTION

REACTIONS (9)
  - FINGER AMPUTATION [None]
  - EXTREMITY NECROSIS [None]
  - PLEURAL EFFUSION [None]
  - CHEST PAIN [None]
  - SKIN DISCOLOURATION [None]
  - DYSPNOEA [None]
  - VASOSPASM [None]
  - HAEMOLYTIC ANAEMIA [None]
  - THROMBOCYTOPENIA [None]
